FAERS Safety Report 21568266 (Version 1)
Quarter: 2022Q4

REPORT INFORMATION
  Report Type: Spontaneous
  Country: US (occurrence: None)
  Receive Date: 20221108
  Receipt Date: 20221108
  Transmission Date: 20230112
  Serious: Yes (Other)
  Sender: FDA-Public Use
  Company Number: US-FARMAPROD-202210-2134

PATIENT
  Sex: Female
  Weight: 66.738 kg

DRUGS (11)
  1. OXERVATE [Suspect]
     Active Substance: CENEGERMIN-BKBJ
     Indication: Neurotrophic keratopathy
     Route: 047
     Dates: start: 20220810
  2. OXERVATE [Suspect]
     Active Substance: CENEGERMIN-BKBJ
     Indication: Hypoaesthesia eye
  3. PANTOPRAZOLE SODIUM [Concomitant]
     Active Substance: PANTOPRAZOLE SODIUM
     Dosage: DELAYED RELEASE
  4. OLMESARTAN MEDOXOMIL [Concomitant]
     Active Substance: OLMESARTAN MEDOXOMIL
  5. GABAPENTIN [Concomitant]
     Active Substance: GABAPENTIN
  6. ACETAMINOPHEN\HYDROCODONE [Concomitant]
     Active Substance: ACETAMINOPHEN\HYDROCODONE
  7. EZETIMIBE [Concomitant]
     Active Substance: EZETIMIBE
  8. HUMALOG [Concomitant]
     Active Substance: INSULIN LISPRO
  9. DULOXETINE HYDROCHLORIDE [Concomitant]
     Active Substance: DULOXETINE HYDROCHLORIDE
     Dosage: DELAYED RELEASE
  10. SIMVASTATIN [Concomitant]
     Active Substance: SIMVASTATIN
  11. SYNTHROID [Concomitant]
     Active Substance: LEVOTHYROXINE SODIUM

REACTIONS (1)
  - Hip surgery [Unknown]
